FAERS Safety Report 9475844 (Version 1)
Quarter: 2013Q3

REPORT INFORMATION
  Report Type: Spontaneous
  Country: US (occurrence: None)
  Receive Date: 20130822
  Receipt Date: 20130822
  Transmission Date: 20140515
  Serious: Yes (Life-Threatening, Hospitalization)
  Sender: FDA-Public Use
  Company Number: None

PATIENT
  Age: 60 Year
  Sex: Female
  Weight: 100 kg

DRUGS (1)
  1. GLIMEPERIDE [Suspect]
     Indication: BLOOD GLUCOSE ABNORMAL
     Dates: start: 20130818, end: 20130818

REACTIONS (1)
  - Hypoglycaemia [None]
